FAERS Safety Report 9275278 (Version 3)
Quarter: 2013Q4

REPORT INFORMATION
  Report Type: Spontaneous
  Country: US (occurrence: US)
  Receive Date: 20130507
  Receipt Date: 20131216
  Transmission Date: 20140711
  Serious: Yes (Other)
  Sender: FDA-Public Use
  Company Number: US-BAYER-2013-054684

PATIENT
  Age: 27 Year
  Sex: Female
  Weight: 72.56 kg

DRUGS (6)
  1. MIRENA [Suspect]
     Indication: CONTRACEPTION
     Dosage: 20 MCG/24HR, CONT
     Route: 015
     Dates: start: 200906, end: 20130319
  2. PROAIR HFA [Concomitant]
     Indication: ASTHMA
     Dosage: MY WHOLE LIFE
  3. SPIRONOLACTONE [Concomitant]
     Indication: HORMONE LEVEL ABNORMAL
     Dosage: UNK
     Route: 048
     Dates: start: 201302
  4. SPIRONOLACTONE [Concomitant]
     Indication: HIRSUTISM
  5. SPIRONOLACTONE [Concomitant]
     Indication: FEELING HOT
  6. AVIANE [Concomitant]

REACTIONS (9)
  - Uterine perforation [None]
  - Injury [None]
  - Discomfort [None]
  - Pain [None]
  - General physical health deterioration [None]
  - Procedural pain [None]
  - Emotional distress [None]
  - Irritability [None]
  - Anxiety [None]
